FAERS Safety Report 9643970 (Version 1)
Quarter: 2013Q4

REPORT INFORMATION
  Report Type: Spontaneous
  Country: US (occurrence: US)
  Receive Date: 20131024
  Receipt Date: 20131024
  Transmission Date: 20140711
  Serious: No
  Sender: FDA-Public Use
  Company Number: US-B.I. PHARMACEUTICALS,INC./RIDGEFIELD-2013-BI-32487BP

PATIENT
  Sex: Female

DRUGS (5)
  1. SPIRIVA [Suspect]
     Indication: CHRONIC OBSTRUCTIVE PULMONARY DISEASE
     Dosage: 18 MCG
     Route: 055
     Dates: start: 20131011
  2. SIMVASTATIN [Concomitant]
     Dosage: 40 MG
     Route: 048
  3. FENOFIBRATE [Concomitant]
     Dosage: 160 MG
     Route: 048
  4. PROAIR [Concomitant]
     Indication: CHRONIC OBSTRUCTIVE PULMONARY DISEASE
     Dosage: FORMULATION : INHALATION SPRAY
     Route: 055
     Dates: start: 20131010
  5. LEVOTHYROXINE [Concomitant]
     Dosage: 75 MCG
     Route: 048

REACTIONS (1)
  - Dyspnoea [Not Recovered/Not Resolved]
